FAERS Safety Report 23195847 (Version 1)
Quarter: 2023Q4

REPORT INFORMATION
  Report Type: Spontaneous
  Country: US (occurrence: US)
  Receive Date: 20231117
  Receipt Date: 20231117
  Transmission Date: 20240110
  Serious: Yes (Other)
  Sender: FDA-Public Use
  Company Number: US-SA-SAC20231116000446

PATIENT
  Age: 64 Year
  Sex: Female

DRUGS (1)
  1. DUPIXENT [Suspect]
     Active Substance: DUPILUMAB
     Dosage: 300 MG
     Route: 058

REACTIONS (9)
  - Rectal haemorrhage [Unknown]
  - Skin lesion [Unknown]
  - Acne pustular [Unknown]
  - Skin ulcer [Unknown]
  - Pharyngeal ulceration [Unknown]
  - Stomatitis [Unknown]
  - Eyelid margin crusting [Unknown]
  - Pain [Unknown]
  - Scab [Unknown]
